FAERS Safety Report 21773330 (Version 1)
Quarter: 2022Q4

REPORT INFORMATION
  Report Type: Spontaneous
  Country: FR (occurrence: None)
  Receive Date: 20221223
  Receipt Date: 20221223
  Transmission Date: 20230112
  Serious: Yes (Death)
  Sender: FDA-Public Use
  Company Number: 2022A413094

PATIENT
  Age: 71 Year
  Sex: Female
  Weight: 91 kg

DRUGS (9)
  1. DAPAGLIFLOZIN [Suspect]
     Active Substance: DAPAGLIFLOZIN
     Indication: Diabetes mellitus
     Route: 065
     Dates: start: 20220624, end: 20221116
  2. CHOLECALCIFEROL [Concomitant]
     Active Substance: CHOLECALCIFEROL
  3. FUROSEMIDE [Concomitant]
     Active Substance: FUROSEMIDE
  4. ENTRESTO [Concomitant]
     Active Substance: SACUBITRIL\VALSARTAN
  5. LEVEMIR [Concomitant]
     Active Substance: INSULIN DETEMIR
  6. PANTOPRAZOLE [Concomitant]
     Active Substance: PANTOPRAZOLE
  7. BISOPROLOL (FUMARATE OF) [Concomitant]
  8. LIPTRUZET [Concomitant]
     Active Substance: ATORVASTATIN CALCIUM\EZETIMIBE
  9. CLOPIDOGREL (BISILATE OF) [Concomitant]

REACTIONS (1)
  - Dermo-hypodermitis [Fatal]

NARRATIVE: CASE EVENT DATE: 20221116
